FAERS Safety Report 8246149-7 (Version None)
Quarter: 2012Q1

REPORT INFORMATION
  Report Type: 
  Country: None (occurrence: None)
  Receive Date: 20120328
  Receipt Date: 20120328
  Transmission Date: 20120608
  Serious: Yes (Life-Threatening, Other)
  Sender: FDA-Public Use
  Company Number: None

PATIENT
  Sex: Female

DRUGS (1)
  1. CRESTOR [Suspect]
     Dosage: 10 MG 1X NITE

REACTIONS (6)
  - HYPERTENSION [None]
  - MUSCLE SPASMS [None]
  - ALOPECIA [None]
  - DYSPNOEA [None]
  - HYPERHIDROSIS [None]
  - WEIGHT INCREASED [None]
